FAERS Safety Report 4283940-6 (Version None)
Quarter: 2004Q1

REPORT INFORMATION
  Report Type: 
  Country: None (occurrence: None)
  Receive Date: 20040115
  Receipt Date: 20030609
  Transmission Date: 20041129
  Serious: Yes (Hospitalization)
  Sender: FDA-Public Use
  Company Number: NSADSS2002047703

PATIENT
  Age: 50 Year
  Sex: Female

DRUGS (2)
  1. DOXIL [Suspect]
     Indication: OVARIAN CANCER
     Dosage: 6 CYCLES
  2. NEULASTA [Concomitant]

REACTIONS (2)
  - CONDITION AGGRAVATED [None]
  - HEADACHE [None]
